FAERS Safety Report 6752597-4 (Version None)
Quarter: 2010Q2

REPORT INFORMATION
  Report Type: 
  Country: None (occurrence: None)
  Receive Date: 20100602
  Receipt Date: 20100525
  Transmission Date: 20101027
  Serious: Yes (Death)
  Sender: FDA-Public Use
  Company Number: ZW-B.I. PHARMACEUTICALS,INC./RIDGEFIELD-2010-DE-02885GD

PATIENT

DRUGS (2)
  1. TRIOMUNE [Suspect]
     Indication: HIV INFECTION
     Dosage: STAVUDINE 60 MG, LAMIVUDINE 300 MG, AND NEVIRAPINE 400 MG (WITH A 200-MG ONCE-DAILY 2-WEEK LEAD-IN D
  2. DIFLUCAN [Suspect]
     Indication: MENINGITIS CRYPTOCOCCAL

REACTIONS (1)
  - ANAEMIA [None]
